FAERS Safety Report 19482133 (Version 7)
Quarter: 2022Q4

REPORT INFORMATION
  Report Type: Report from Study
  Country: CA (occurrence: CA)
  Receive Date: 20210701
  Receipt Date: 20221122
  Transmission Date: 20230113
  Serious: Yes (Other)
  Sender: FDA-Public Use
  Company Number: CA-ABBVIE-21K-028-3971596-00

PATIENT
  Age: 29 Year
  Sex: Female

DRUGS (15)
  1. SKYRIZI [Suspect]
     Active Substance: RISANKIZUMAB-RZAA
     Indication: Psoriasis
     Route: 058
     Dates: start: 20201007, end: 20201107
  2. SKYRIZI [Suspect]
     Active Substance: RISANKIZUMAB-RZAA
     Dosage: LAST ADMINISTRATION DATE WAS 2020
     Route: 058
     Dates: start: 20201108
  3. SALINE NASAL MIST [Concomitant]
     Indication: Sinus headache
     Dosage: AS NEEDED
     Route: 045
     Dates: start: 20201009
  4. METHYLPHENIDATE [Concomitant]
     Active Substance: METHYLPHENIDATE
     Indication: Disturbance in attention
     Route: 048
     Dates: start: 20180801, end: 20211006
  5. VENLAFAXINE [Concomitant]
     Active Substance: VENLAFAXINE HYDROCHLORIDE
     Indication: Anxiety
     Route: 048
     Dates: start: 202205
  6. RAMIPRIL [Concomitant]
     Active Substance: RAMIPRIL
     Indication: Hypertension
     Route: 048
     Dates: start: 20190205, end: 20210901
  7. RAMIPRIL [Concomitant]
     Active Substance: RAMIPRIL
     Indication: Hypertension
     Route: 048
     Dates: start: 20210902, end: 20211006
  8. MIRENA [Concomitant]
     Active Substance: LEVONORGESTREL
     Indication: Contraception
     Dosage: 1 IUD, ONCE
     Route: 015
     Dates: start: 20180827, end: 20210520
  9. TYLENOL [Concomitant]
     Active Substance: ACETAMINOPHEN
     Indication: Nasopharyngitis
     Dosage: AS NEEDED
     Route: 048
     Dates: start: 20201104, end: 20201114
  10. TYLENOL [Concomitant]
     Active Substance: ACETAMINOPHEN
     Indication: Nasopharyngitis
     Route: 048
     Dates: start: 20201009
  11. FUCIDIN [Concomitant]
     Active Substance: FUSIDATE SODIUM
     Indication: Skin ulcer
     Dosage: 1 USE
     Route: 061
     Dates: start: 20210323
  12. NIFEDIPINE [Concomitant]
     Active Substance: NIFEDIPINE
     Indication: Hypertension
     Route: 048
     Dates: start: 202203, end: 202205
  13. MIRENA [Concomitant]
     Active Substance: LEVONORGESTREL
     Indication: Prophylaxis
     Dosage: 1 IUD/20MICRORAM
     Route: 015
     Dates: start: 20180827, end: 20210520
  14. LABETALOL [Concomitant]
     Active Substance: LABETALOL\LABETALOL HYDROCHLORIDE
     Indication: Hypertension
     Dosage: TIME INTERVAL: 0.33333333 DAYS
     Route: 048
     Dates: start: 202203, end: 202205
  15. LABETALOL [Concomitant]
     Active Substance: LABETALOL\LABETALOL HYDROCHLORIDE
     Indication: Hypertension
     Dosage: TIME INTERVAL: 0.33333333 DAYS
     Route: 048
     Dates: start: 20211007, end: 202203

REACTIONS (1)
  - Polyp [Recovered/Resolved]

NARRATIVE: CASE EVENT DATE: 20210520
